FAERS Safety Report 13148558 (Version 1)
Quarter: 2017Q1

REPORT INFORMATION
  Report Type: Spontaneous
  Country: US (occurrence: US)
  Receive Date: 20170124
  Receipt Date: 20170124
  Transmission Date: 20170428
  Serious: Yes (Other)
  Sender: FDA-Public Use
  Company Number: None

PATIENT
  Age: 1 Year
  Sex: Male
  Weight: 49.49 kg

DRUGS (1)
  1. OXCARBAZEPINE 300MG/5ML, 300 MG AMNEAL [Suspect]
     Active Substance: OXCARBAZEPINE

REACTIONS (1)
  - Vomiting [None]

NARRATIVE: CASE EVENT DATE: 201612
